FAERS Safety Report 11977198 (Version 1)
Quarter: 2016Q1

REPORT INFORMATION
  Report Type: Report from Study
  Country: CO (occurrence: CO)
  Receive Date: 20160129
  Receipt Date: 20160129
  Transmission Date: 20160526
  Serious: Yes (Hospitalization, Other)
  Sender: FDA-Public Use
  Company Number: PHHY2015CO066315

PATIENT
  Age: 57 Year
  Sex: Female
  Weight: 40 kg

DRUGS (3)
  1. AFINITOR [Suspect]
     Active Substance: EVEROLIMUS
     Indication: NEUROENDOCRINE TUMOUR
  2. AFINITOR [Suspect]
     Active Substance: EVEROLIMUS
     Indication: RENAL CANCER
     Dosage: 0.5 DF, UNK (HALF TABLET OF 10 MG)
     Route: 065
     Dates: start: 20150416
  3. AFINITOR [Suspect]
     Active Substance: EVEROLIMUS
     Indication: BREAST CANCER
     Dosage: 5 MG, QD
     Route: 048
     Dates: start: 20150316

REACTIONS (17)
  - Hypoaesthesia [Unknown]
  - Underweight [Unknown]
  - Onychomycosis [Unknown]
  - Diarrhoea [Unknown]
  - Speech disorder [Unknown]
  - Onychomadesis [Unknown]
  - Skin discolouration [Unknown]
  - Mouth injury [Unknown]
  - Asthenia [Unknown]
  - General physical health deterioration [Unknown]
  - Pulmonary oedema [Unknown]
  - Rash [Unknown]
  - Oral mucosal exfoliation [Unknown]
  - Eating disorder [Unknown]
  - Skin odour abnormal [Unknown]
  - Nail injury [Unknown]
  - Wrong technique in product usage process [Unknown]

NARRATIVE: CASE EVENT DATE: 20151012
